FAERS Safety Report 5349939-3 (Version None)
Quarter: 2007Q2

REPORT INFORMATION
  Report Type: 
  Country: None (occurrence: None)
  Receive Date: 20070607
  Receipt Date: 20070530
  Transmission Date: 20071010
  Serious: Yes (Hospitalization)
  Sender: FDA-Public Use
  Company Number: IN-GILEAD-2006-0010487

PATIENT
  Age: 28 Year
  Sex: Female

DRUGS (9)
  1. EMTRICITABINE [Suspect]
     Indication: HIV INFECTION
     Route: 048
     Dates: start: 20060919, end: 20061005
  2. EMTRICITABINE [Suspect]
     Dates: start: 20061014
  3. TENOFOVIR DISOPROXIL FUMARATE [Suspect]
     Indication: HIV INFECTION
     Route: 048
     Dates: start: 20060919, end: 20061005
  4. TENOFOVIR DISOPROXIL FUMARATE [Suspect]
     Dates: start: 20061014
  5. EFAVIRENZ [Suspect]
     Indication: HIV INFECTION
     Route: 048
     Dates: start: 20060919, end: 20061005
  6. EFAVIRENZ [Suspect]
     Dates: start: 20061014
  7. PENTOPRAZOLE [Suspect]
     Indication: BACILLUS INFECTION
     Route: 051
     Dates: start: 20061006
  8. MAXAMIN FORTE [Concomitant]
     Dates: start: 20061013
  9. DULCOLAX [Concomitant]
     Indication: COLONOSCOPY
     Dates: start: 20061011

REACTIONS (1)
  - TUBERCULOSIS GASTROINTESTINAL [None]
